FAERS Safety Report 9543671 (Version 4)
Quarter: 2014Q1

REPORT INFORMATION
  Report Type: Report from Study
  Country: FR (occurrence: FR)
  Receive Date: 20130923
  Receipt Date: 20140220
  Transmission Date: 20141002
  Serious: Yes (Death, Other)
  Sender: FDA-Public Use
  Company Number: FR-SANOFI-AVENTIS-CAMP-1002964

PATIENT
  Age: 86 Year
  Sex: Male

DRUGS (13)
  1. ALEMTUZUMAB [Suspect]
     Indication: CHRONIC LYMPHOCYTIC LEUKAEMIA
     Dosage: THREE INJECTIONS PER WEEK
     Route: 042
     Dates: start: 20130104, end: 20130227
  2. PROCORALAN [Concomitant]
     Dosage: 2/DAY
  3. BISOPROLOL [Concomitant]
     Dosage: 1/DAY
  4. ATACAND [Concomitant]
     Dosage: 1/DAY
  5. TAHOR [Concomitant]
     Dosage: 1/DAY
  6. KARDEGIC [Concomitant]
     Dosage: 1/DAY
  7. GLUCOPHAGE [Concomitant]
     Dosage: 2/DAY
  8. ALLOPURINOL [Concomitant]
     Dosage: 1/DAY
  9. BACTRIM [Concomitant]
     Dosage: 1/DAY
  10. ZELITREX [Concomitant]
     Dosage: 2/DAY
  11. TAMSULOSIN [Concomitant]
     Dosage: 1/DAY
  12. EUPANTOL [Concomitant]
     Dosage: 1/DAY
  13. ZOLPIDEM [Concomitant]
     Dosage: 1/DAY

REACTIONS (5)
  - Drug ineffective [Unknown]
  - General physical health deterioration [Unknown]
  - Cognitive disorder [Unknown]
  - Cardiac failure [Recovered/Resolved]
  - Cardiopulmonary failure [Fatal]
